FAERS Safety Report 21217570 (Version 1)
Quarter: 2022Q3

REPORT INFORMATION
  Report Type: Spontaneous
  Country: US (occurrence: US)
  Receive Date: 20220816
  Receipt Date: 20220816
  Transmission Date: 20221026
  Serious: Yes (Other)
  Sender: FDA-Public Use
  Company Number: US-PFIZER INC-202201054552

PATIENT
  Age: 43 Year
  Sex: Female
  Weight: 89.796 kg

DRUGS (2)
  1. XELJANZ XR [Suspect]
     Active Substance: TOFACITINIB CITRATE
     Indication: Pain
     Dosage: 11 MG, DAILY
     Route: 048
     Dates: start: 2022, end: 20220718
  2. XELJANZ XR [Suspect]
     Active Substance: TOFACITINIB CITRATE
     Indication: Pain

REACTIONS (3)
  - Functional gastrointestinal disorder [Recovered/Resolved]
  - Off label use [Unknown]
  - Product residue present [Unknown]

NARRATIVE: CASE EVENT DATE: 20220101
